FAERS Safety Report 8503010-8 (Version None)
Quarter: 2012Q3

REPORT INFORMATION
  Report Type: 
  Country: None (occurrence: None)
  Receive Date: 20120705
  Receipt Date: 20120705
  Transmission Date: 20120928
  Serious: No
  Sender: FDA-Public Use
  Company Number: None

PATIENT
  Age: 54 Year
  Sex: Male
  Weight: 81.6475 kg

DRUGS (1)
  1. LITHOBID [Suspect]
     Indication: BIPOLAR II DISORDER
     Dosage: 3 QD PO
     Route: 048
     Dates: start: 20120627, end: 20120627

REACTIONS (4)
  - LETHARGY [None]
  - DISTURBANCE IN ATTENTION [None]
  - PERFORMANCE STATUS DECREASED [None]
  - SOMNOLENCE [None]
